FAERS Safety Report 5855791-X (Version None)
Quarter: 2008Q3

REPORT INFORMATION
  Report Type: 
  Country: None (occurrence: None)
  Receive Date: 20080825
  Receipt Date: 20080514
  Transmission Date: 20090109
  Serious: Yes (Other)
  Sender: FDA-Public Use
  Company Number: US-KINGPHARMUSA00001-K200800560

PATIENT

DRUGS (6)
  1. SEPTRA [Suspect]
     Indication: INFECTION PROPHYLAXIS
     Dosage: UNK, BID
     Route: 048
     Dates: start: 20080201, end: 20080201
  2. LABETALOL HCL [Concomitant]
     Indication: HYPERTENSION
     Dosage: 100 MG, BID
     Route: 048
  3. VYTORIN [Concomitant]
     Dosage: ONE TABLET, QHS
     Route: 048
  4. ASPIRIN [Concomitant]
     Dosage: 81 MG, QD
     Route: 048
  5. THERAGRAN-M [Concomitant]
     Dosage: ONE TABLET, QD
     Route: 048
  6. XANAX [Concomitant]
     Indication: INSOMNIA
     Dosage: .5 MG, QHS
     Route: 048

REACTIONS (2)
  - AMNESIA [None]
  - CONVULSION [None]
